FAERS Safety Report 4809424-1 (Version None)
Quarter: 2005Q4

REPORT INFORMATION
  Report Type: 
  Country: None (occurrence: None)
  Receive Date: 20051021
  Receipt Date: 20051012
  Transmission Date: 20060501
  Serious: Yes (Other)
  Sender: FDA-Public Use
  Company Number: 2005130927

PATIENT
  Age: 5 Year
  Sex: Female

DRUGS (4)
  1. ZYRTEC [Suspect]
     Indication: HYPERSENSITIVITY
     Dosage: 10 MG (5 MG, 2 IN 1 D)
     Dates: start: 20050301, end: 20050101
  2. CLARINEX [Suspect]
     Indication: HYPERSENSITIVITY
     Dates: start: 20050101, end: 20050101
  3. ANTIBIOTICS (ANTIBIOTICS) [Concomitant]
  4. ALL OTHER THERAPEUTIC PRODUCTS (ALL OTHER THERAPEUTIC PRODUCTS) [Concomitant]

REACTIONS (13)
  - ABNORMAL BEHAVIOUR [None]
  - ALLERGY TO ANIMAL [None]
  - ALOPECIA AREATA [None]
  - ALOPECIA EFFLUVIUM [None]
  - BLOOD DISORDER [None]
  - DRUG INEFFECTIVE [None]
  - FATIGUE [None]
  - IRRITABILITY [None]
  - MOOD ALTERED [None]
  - PERIORBITAL OEDEMA [None]
  - POISONING [None]
  - RASH [None]
  - URTICARIA [None]
